FAERS Safety Report 21259925 (Version 4)
Quarter: 2022Q4

REPORT INFORMATION
  Report Type: Report from Study
  Country: US (occurrence: US)
  Receive Date: 20220826
  Receipt Date: 20221027
  Transmission Date: 20230113
  Serious: No
  Sender: FDA-Public Use
  Company Number: US-BIOVITRUM-2022US09659

PATIENT
  Age: 42 Year
  Sex: Female

DRUGS (7)
  1. KINERET [Suspect]
     Active Substance: ANAKINRA
     Indication: Systemic lupus erythematosus
     Dates: start: 20220805
  2. KINERET [Suspect]
     Active Substance: ANAKINRA
     Dates: start: 20220701
  3. AZATHIOPRINE [Concomitant]
     Active Substance: AZATHIOPRINE
  4. OXYCODONE [Concomitant]
     Active Substance: OXYCODONE
  5. VITAMIN D3 [Concomitant]
     Active Substance: CHOLECALCIFEROL
  6. HYDROXYCHLOROQUINE [Concomitant]
     Active Substance: HYDROXYCHLOROQUINE
  7. MYCOPHENOLIC ACID [Concomitant]
     Active Substance: MYCOPHENOLIC ACID

REACTIONS (8)
  - Proctalgia [Unknown]
  - Urinary tract discomfort [Unknown]
  - Abdominal discomfort [Unknown]
  - Dizziness [Unknown]
  - Injection site rash [Unknown]
  - Injection site erythema [Unknown]
  - Product dose omission issue [Unknown]
  - Off label use [Unknown]

NARRATIVE: CASE EVENT DATE: 20220701
